FAERS Safety Report 7723998-2 (Version None)
Quarter: 2011Q3

REPORT INFORMATION
  Report Type: 
  Country: None (occurrence: None)
  Receive Date: 20110901
  Receipt Date: 20110822
  Transmission Date: 20111222
  Serious: Yes (Life-Threatening, Hospitalization, Other)
  Sender: FDA-Public Use
  Company Number: US-ELI_LILLY_AND_COMPANY-US201106004934

PATIENT
  Sex: Female

DRUGS (11)
  1. FORTEO [Suspect]
     Indication: OSTEOPOROSIS
     Dosage: 20 UG, QD
     Route: 058
     Dates: start: 20090928, end: 20110501
  2. LISINOPRIL [Concomitant]
  3. PAROXETINE HCL [Concomitant]
  4. PILOCARPINE [Concomitant]
  5. POTASSIUM [Concomitant]
  6. DETROL [Concomitant]
  7. FUROSEMIDE [Concomitant]
  8. LEVOTHYROXINE SODIUM [Concomitant]
  9. SPIRIVA [Concomitant]
  10. COUMADIN [Concomitant]
  11. LUMIGAN [Concomitant]

REACTIONS (5)
  - MALIGNANT ASCITES [None]
  - PNEUMONIA [None]
  - RENAL FAILURE [None]
  - UTERINE CANCER [None]
  - POST PROCEDURAL HAEMATOMA [None]
